FAERS Safety Report 11709936 (Version 1)
Quarter: 2015Q4

REPORT INFORMATION
  Report Type: Spontaneous
  Country: US (occurrence: US)
  Receive Date: 20151104
  Receipt Date: 20151104
  Transmission Date: 20160304
  Serious: No
  Sender: FDA-Public Use
  Company Number: US-ELI_LILLY_AND_COMPANY-US201103008972

PATIENT
  Sex: Female

DRUGS (1)
  1. FORTEO [Suspect]
     Active Substance: TERIPARATIDE
     Indication: OSTEOPOROSIS
     Dosage: 20 UG, QD
     Route: 065
     Dates: start: 201102

REACTIONS (6)
  - Cough [Unknown]
  - Dry skin [Unknown]
  - Hypersensitivity [Unknown]
  - Rhinitis [Unknown]
  - Pruritus generalised [Not Recovered/Not Resolved]
  - Injection site bruising [Unknown]
